FAERS Safety Report 24678682 (Version 2)
Quarter: 2024Q4

REPORT INFORMATION
  Report Type: Spontaneous
  Country: ES (occurrence: ES)
  Receive Date: 20241129
  Receipt Date: 20241204
  Transmission Date: 20250114
  Serious: Yes (Other)
  Sender: ROCHE
  Company Number: ES-ROCHE-10000137767

PATIENT
  Age: 67 Year
  Sex: Female

DRUGS (2)
  1. AVASTIN [Suspect]
     Active Substance: BEVACIZUMAB
     Indication: Age-related macular degeneration
     Dosage: LAST DOSE WAS ON 08/AUG/2024.
     Route: 065
  2. VABYSMO [Suspect]
     Active Substance: FARICIMAB-SVOA
     Indication: Age-related macular degeneration
     Dosage: RECENT DOSES: 07-OCT-2024 AND 06-NOV-2024
     Route: 050
     Dates: start: 20240906

REACTIONS (2)
  - Uveitis [Unknown]
  - Vitritis [Unknown]

NARRATIVE: CASE EVENT DATE: 20241111
